FAERS Safety Report 20169882 (Version 1)
Quarter: 2021Q4

REPORT INFORMATION
  Report Type: Spontaneous
  Country: US (occurrence: None)
  Receive Date: 20211210
  Receipt Date: 20211210
  Transmission Date: 20220304
  Serious: Yes (Hospitalization)
  Sender: FDA-Public Use
  Company Number: 2021A855370

PATIENT
  Age: 23668 Day
  Sex: Female
  Weight: 56.7 kg

DRUGS (5)
  1. BUDESONIDE\FORMOTEROL\GLYCOPYRRONIUM [Suspect]
     Active Substance: BUDESONIDE\FORMOTEROL\GLYCOPYRRONIUM
     Indication: Chronic obstructive pulmonary disease
     Dosage: 160/9/4.8 TWO PUFFS TWO TIMES A DAY
     Route: 055
     Dates: start: 2021
  2. SYMBICORT [Concomitant]
     Active Substance: BUDESONIDE\FORMOTEROL FUMARATE DIHYDRATE
     Indication: Chronic obstructive pulmonary disease
     Dosage: 2 PUFFS BID FOR A FEW YEARS
     Route: 055
  3. ROSUVASTATIN [Concomitant]
     Active Substance: ROSUVASTATIN
     Indication: Hypercholesterolaemia
     Route: 048
  4. SPIRIVA [Concomitant]
     Active Substance: TIOTROPIUM BROMIDE MONOHYDRATE
     Indication: Chronic obstructive pulmonary disease
     Route: 065
  5. VENTOLIN [Concomitant]
     Active Substance: ALBUTEROL SULFATE
     Indication: Dyspnoea
     Dosage: UNKNOWN
     Route: 065

REACTIONS (3)
  - Chronic obstructive pulmonary disease [Unknown]
  - Wrong technique in product usage process [Unknown]
  - Device issue [Unknown]

NARRATIVE: CASE EVENT DATE: 20211128
